FAERS Safety Report 9243241 (Version 2)
Quarter: 2013Q2

REPORT INFORMATION
  Report Type: Spontaneous
  Country: JP (occurrence: JP)
  Receive Date: 20130419
  Receipt Date: 20130419
  Transmission Date: 20140414
  Serious: Yes (Hospitalization, Other)
  Sender: FDA-Public Use
  Company Number: JP-GILEAD-2012-0066543

PATIENT
  Age: 42 Year
  Sex: Male

DRUGS (8)
  1. HEPSERA [Suspect]
     Indication: CHRONIC HEPATITIS B
     Dosage: 10MG PER DAY
     Route: 048
     Dates: start: 200503
  2. HEPSERA [Suspect]
     Dosage: 10 MG, UNK
     Route: 048
     Dates: start: 20050303, end: 20110421
  3. HEPSERA [Suspect]
     Dosage: 10MG ALTERNATE DAYS
     Route: 048
     Dates: start: 20110422
  4. ZEFIX-100 [Suspect]
     Indication: CHRONIC HEPATITIS B
     Dosage: 100MG PER DAY
     Route: 048
     Dates: start: 20010604, end: 20081204
  5. URSO                               /00465701/ [Concomitant]
     Indication: CHRONIC HEPATITIS B
     Dosage: 100MG THREE TIMES PER DAY
     Route: 048
     Dates: start: 19990925, end: 20060615
  6. PARIET [Concomitant]
     Indication: DUODENAL ULCER
     Dosage: 10MG PER DAY
     Route: 048
     Dates: start: 20001002, end: 20001203
  7. GASMOTIN [Concomitant]
     Indication: GASTRITIS
     Dosage: 5MG THREE TIMES PER DAY
     Route: 048
     Dates: start: 20001002, end: 20050716
  8. ZANTAC [Concomitant]
     Indication: GASTRITIS
     Dosage: 150MG PER DAY
     Route: 048
     Dates: start: 20001204, end: 20100715

REACTIONS (8)
  - Liver disorder [Unknown]
  - Musculoskeletal chest pain [Unknown]
  - Spinal osteoarthritis [Unknown]
  - Back pain [Unknown]
  - Hepatic function abnormal [Recovering/Resolving]
  - Fanconi syndrome acquired [Not Recovered/Not Resolved]
  - Hypophosphataemia [Not Recovered/Not Resolved]
  - Hepatitis B DNA assay positive [Recovering/Resolving]
